FAERS Safety Report 13541245 (Version 2)
Quarter: 2017Q2

REPORT INFORMATION
  Report Type: Report from Study
  Country: GB (occurrence: GB)
  Receive Date: 20170512
  Receipt Date: 20170608
  Transmission Date: 20170830
  Serious: Yes (Other)
  Sender: FDA-Public Use
  Company Number: GB-JNJFOC-20170511989

PATIENT
  Sex: Female

DRUGS (1)
  1. STELARA [Suspect]
     Active Substance: USTEKINUMAB
     Indication: PSORIASIS
     Route: 058
     Dates: end: 20170330

REACTIONS (4)
  - Lower respiratory tract infection [Unknown]
  - Arthropathy [Unknown]
  - Bronchitis [Unknown]
  - Viral upper respiratory tract infection [Unknown]
